FAERS Safety Report 7816062-5 (Version None)
Quarter: 2011Q4

REPORT INFORMATION
  Report Type: 
  Country: None (occurrence: None)
  Receive Date: 20111015
  Receipt Date: 20111005
  Transmission Date: 20120403
  Serious: Yes (Other)
  Sender: FDA-Public Use
  Company Number: US-ASTRAZENECA-2011SE56415

PATIENT
  Age: 55 Year
  Sex: Female

DRUGS (3)
  1. SEROQUEL [Suspect]
     Route: 048
  2. SEROQUEL [Suspect]
     Dosage: ONE - ONE AND HALF TABLETS AT BEDTIME
     Route: 048
  3. SEROQUEL [Suspect]
     Dosage: UP TO 300 MILLIGRAM AT NIGHT
     Route: 048

REACTIONS (7)
  - DEPRESSION [None]
  - ANXIETY [None]
  - FEELING OF DESPAIR [None]
  - DRUG DOSE OMISSION [None]
  - MANIA [None]
  - OVARIAN CANCER METASTATIC [None]
  - BIPOLAR DISORDER [None]
